FAERS Safety Report 9900718 (Version 1)
Quarter: 2014Q1

REPORT INFORMATION
  Report Type: Spontaneous
  Country: US (occurrence: US)
  Receive Date: 20140217
  Receipt Date: 20140217
  Transmission Date: 20141002
  Serious: Yes (Other)
  Sender: FDA-Public Use
  Company Number: US-ROCHE-1348087

PATIENT
  Age: 84 Year
  Sex: Male

DRUGS (5)
  1. CELLCEPT [Suspect]
     Indication: WAGNER^S DISEASE
     Route: 065
  2. ALLOPURINOL [Concomitant]
     Route: 065
  3. FOLIC ACID [Concomitant]
     Route: 065
  4. CINNAMON [Concomitant]
  5. GEMFIBROZIL [Concomitant]
     Route: 065

REACTIONS (4)
  - Diverticulitis [Unknown]
  - Urticaria [Recovering/Resolving]
  - Rash macular [Unknown]
  - Dizziness [Unknown]
